FAERS Safety Report 4428345-X (Version None)
Quarter: 2004Q3

REPORT INFORMATION
  Report Type: 
  Country: None (occurrence: None)
  Receive Date: 20040818
  Receipt Date: 20040806
  Transmission Date: 20050211
  Serious: Yes (Other)
  Sender: FDA-Public Use
  Company Number: US-JNJFOC-20040604319

PATIENT
  Sex: Female
  Weight: 88.45 kg

DRUGS (12)
  1. REMICADE [Suspect]
     Route: 042
  2. REMICADE [Suspect]
     Route: 042
  3. REMICADE [Suspect]
     Route: 042
  4. REMICADE [Suspect]
     Route: 042
  5. REMICADE [Suspect]
     Route: 042
  6. REMICADE [Suspect]
     Indication: CROHN'S DISEASE
     Route: 042
  7. MERCAPTOPURINE [Concomitant]
  8. MERCAPTOPURINE [Concomitant]
  9. MERCAPTOPURINE [Concomitant]
  10. FOLIC ACID [Concomitant]
  11. IRON [Concomitant]
  12. EPOGEN [Concomitant]

REACTIONS (1)
  - MALIGNANT MELANOMA [None]
